FAERS Safety Report 7199460-5 (Version None)
Quarter: 2010Q4

REPORT INFORMATION
  Report Type: 
  Country: None (occurrence: None)
  Receive Date: 20101228
  Receipt Date: 20101214
  Transmission Date: 20110411
  Serious: Yes (Hospitalization)
  Sender: FDA-Public Use
  Company Number: PHHY2008US37062

PATIENT
  Sex: Male

DRUGS (8)
  1. EXJADE [Suspect]
     Dosage: 500 MG, UNK
     Route: 048
  2. ACYCLOVIR [Concomitant]
     Dosage: 800 MG, BID
  3. BACTRIM [Concomitant]
     Dosage: UNK
  4. ALBUTEROL [Concomitant]
     Dosage: UNK
  5. SPIRIVA [Concomitant]
  6. ADVAIR [Concomitant]
     Dosage: UNK
  7. URSODIOL [Concomitant]
     Dosage: 25 MG, BID
  8. DIPHENHYDRAMINE [Concomitant]
     Indication: NAUSEA
     Dosage: 25 MG, 1-2 Q 4 HRS

REACTIONS (10)
  - BREATH SOUNDS ABNORMAL [None]
  - ECCHYMOSIS [None]
  - FEBRILE NEUTROPENIA [None]
  - HAEMOPTYSIS [None]
  - HAEMORRHAGE [None]
  - INFECTION [None]
  - LEUKOCYTOCLASTIC VASCULITIS [None]
  - PYREXIA [None]
  - RASH [None]
  - THROMBOCYTOPENIA [None]
